FAERS Safety Report 8329677-5 (Version None)
Quarter: 2012Q2

REPORT INFORMATION
  Report Type: 
  Country: None (occurrence: None)
  Receive Date: 20120502
  Receipt Date: 20120427
  Transmission Date: 20120825
  Serious: Yes (Other)
  Sender: FDA-Public Use
  Company Number: US-GLAXOSMITHKLINE-A0963306A

PATIENT
  Age: 67 Year
  Sex: Male
  Weight: 69.5 kg

DRUGS (1)
  1. FLOLAN [Suspect]
     Indication: PULMONARY HYPERTENSION
     Dosage: 21NGKM UNKNOWN
     Dates: start: 20080310

REACTIONS (1)
  - PANCREATITIS [None]
